FAERS Safety Report 13250668 (Version 6)
Quarter: 2017Q2

REPORT INFORMATION
  Report Type: Report from Study
  Country: US (occurrence: US)
  Receive Date: 20170219
  Receipt Date: 20170620
  Transmission Date: 20170830
  Serious: Yes (Other)
  Sender: FDA-Public Use
  Company Number: US-AMGEN-USASL2017023613

PATIENT
  Age: 61 Year
  Sex: Female

DRUGS (4)
  1. ENBREL [Suspect]
     Active Substance: ETANERCEPT
     Dosage: 50 MG, QWK
     Route: 065
     Dates: start: 20170313
  2. PLAQUENIL [Concomitant]
     Active Substance: HYDROXYCHLOROQUINE SULFATE
     Dosage: UNK
     Dates: start: 2017
  3. ENBREL [Suspect]
     Active Substance: ETANERCEPT
     Indication: RHEUMATOID ARTHRITIS
     Dosage: 50 MG, QWK
     Route: 065
     Dates: start: 20170109, end: 2017
  4. ENBREL [Suspect]
     Active Substance: ETANERCEPT
     Dosage: 50 MG, QWK
     Route: 065
     Dates: start: 2017

REACTIONS (23)
  - Localised infection [Unknown]
  - Hypoacusis [Unknown]
  - Staphylococcal infection [Recovering/Resolving]
  - Faeces pale [Unknown]
  - Onychophagia [Unknown]
  - Mental disorder [Unknown]
  - Infection [Unknown]
  - Vulvovaginal mycotic infection [Unknown]
  - Infection susceptibility increased [Unknown]
  - Injection site bruising [Unknown]
  - Injection site pain [Unknown]
  - Anxiety disorder [Unknown]
  - Arthralgia [Unknown]
  - Injection site erythema [Unknown]
  - Hangnail [Unknown]
  - Diarrhoea [Unknown]
  - Laceration [Unknown]
  - Abdominal distension [Unknown]
  - Pain [Unknown]
  - Adverse reaction [Unknown]
  - Headache [Unknown]
  - Migraine [Unknown]
  - Dyspepsia [Unknown]

NARRATIVE: CASE EVENT DATE: 2017
